FAERS Safety Report 9479056 (Version 2)
Quarter: 2013Q4

REPORT INFORMATION
  Report Type: Report from Study
  Country: JP (occurrence: JP)
  Receive Date: 20130827
  Receipt Date: 20131227
  Transmission Date: 20140711
  Serious: Yes (Hospitalization, Other)
  Sender: FDA-Public Use
  Company Number: JP-BAYER-2013-102645

PATIENT
  Age: 41 Year
  Sex: Female
  Weight: 45 kg

DRUGS (8)
  1. STIVARGA [Suspect]
     Indication: COLORECTAL CANCER
     Dosage: DAILY DOSE 160 MG
     Route: 048
     Dates: start: 20130725, end: 20130802
  2. STIVARGA [Suspect]
     Indication: COLORECTAL CANCER
     Dosage: DAILY DOSE 120 MG
     Dates: start: 20130912, end: 20130913
  3. STIVARGA [Suspect]
     Indication: COLORECTAL CANCER
     Dosage: DAILY DOSE 120 MG
     Dates: start: 20130919, end: 20130922
  4. STIVARGA [Suspect]
     Indication: COLORECTAL CANCER
     Dosage: DAILY DOSE 80 MG
     Dates: start: 20130928, end: 20130930
  5. KERATINAMIN [Concomitant]
     Indication: PROPHYLAXIS
     Dosage: UNK
     Route: 061
  6. DERMOVATE [Concomitant]
     Indication: PROPHYLAXIS
     Dosage: UNK
     Route: 061
  7. LASIX [Concomitant]
     Dosage: DAILY DOSE 20 MG
     Route: 048
  8. BIO-THREE [Concomitant]
     Dosage: DAILY DOSE 3 DF
     Route: 048
     Dates: start: 20130823

REACTIONS (10)
  - Palmar-plantar erythrodysaesthesia syndrome [Not Recovered/Not Resolved]
  - Haemoglobin decreased [Unknown]
  - Enterocolitis [Recovering/Resolving]
  - Hypothyroidism [Unknown]
  - Diarrhoea [Not Recovered/Not Resolved]
  - Malaise [Recovering/Resolving]
  - Melaena [Recovering/Resolving]
  - Anaemia [Not Recovered/Not Resolved]
  - Rash [Recovering/Resolving]
  - White blood cell count decreased [Recovering/Resolving]
